FAERS Safety Report 17136367 (Version 1)
Quarter: 2019Q4

REPORT INFORMATION
  Report Type: Spontaneous
  Country: US (occurrence: US)
  Receive Date: 20191120
  Receipt Date: 20191120
  Transmission Date: 20200122
  Serious: No
  Sender: FDA-Public Use
  Company Number: None

PATIENT
  Age: 39 Year
  Sex: Female

DRUGS (1)
  1. IBRANCE [Suspect]
     Active Substance: PALBOCICLIB
     Indication: BREAST CANCER FEMALE
     Dosage: ?          OTHER FREQUENCY:DAILY 21 DAYS 7 OF;?
     Route: 048
     Dates: start: 20190416

REACTIONS (9)
  - Asthenia [None]
  - Fatigue [None]
  - Vomiting [None]
  - Depression [None]
  - Anxiety [None]
  - Decreased appetite [None]
  - Alopecia [None]
  - Restlessness [None]
  - Insomnia [None]

NARRATIVE: CASE EVENT DATE: 20190421
